FAERS Safety Report 12706972 (Version 2)
Quarter: 2017Q1

REPORT INFORMATION
  Report Type: Report from Study
  Country: ET (occurrence: ET)
  Receive Date: 20160901
  Receipt Date: 20170303
  Transmission Date: 20170428
  Serious: Yes (Other)
  Sender: FDA-Public Use
  Company Number: PHHY2016ET088230

PATIENT
  Sex: Female

DRUGS (1)
  1. GLIVEC [Suspect]
     Active Substance: IMATINIB MESYLATE
     Indication: CHRONIC MYELOID LEUKAEMIA
     Dosage: 400 MG, UNK
     Route: 065

REACTIONS (6)
  - Blast crisis in myelogenous leukaemia [Unknown]
  - Second primary malignancy [Unknown]
  - Decreased appetite [Unknown]
  - Therapy non-responder [Unknown]
  - Dyspepsia [Unknown]
  - Cervix carcinoma stage III [Unknown]
